FAERS Safety Report 13139511 (Version 1)
Quarter: 2017Q1

REPORT INFORMATION
  Report Type: Spontaneous
  Country: US (occurrence: US)
  Receive Date: 20170123
  Receipt Date: 20170123
  Transmission Date: 20170428
  Serious: No
  Sender: FDA-Public Use
  Company Number: US-REGENERON PHARMACEUTICALS, INC.-2015-15354

PATIENT

DRUGS (5)
  1. MULTIVITAMINS [Concomitant]
     Active Substance: VITAMINS
  2. EYLEA [Suspect]
     Active Substance: AFLIBERCEPT
     Dosage: UNK
     Route: 031
     Dates: start: 20151205, end: 20151205
  3. EYLEA [Suspect]
     Active Substance: AFLIBERCEPT
     Dosage: UNK, EVERY 4 WEEKS OU
     Dates: start: 201511
  4. EYLEA [Suspect]
     Active Substance: AFLIBERCEPT
     Dosage: UNK, EVERY 8 WEEKS OU
     Route: 031
     Dates: start: 201410, end: 201510
  5. EYLEA [Suspect]
     Active Substance: AFLIBERCEPT
     Indication: NEOVASCULAR AGE-RELATED MACULAR DEGENERATION
     Dosage: UNK, EVERY 4 WEEKS OU
     Route: 031
     Dates: start: 201407

REACTIONS (3)
  - Disease progression [Not Recovered/Not Resolved]
  - Visual acuity reduced [Not Recovered/Not Resolved]
  - Vision blurred [Recovered/Resolved]

NARRATIVE: CASE EVENT DATE: 201512
